FAERS Safety Report 24332762 (Version 1)
Quarter: 2024Q3

REPORT INFORMATION
  Report Type: Spontaneous
  Country: ES (occurrence: ES)
  Receive Date: 20240918
  Receipt Date: 20240918
  Transmission Date: 20241017
  Serious: Yes (Other)
  Sender: PFIZER
  Company Number: ES-UCBSA-2024044224

PATIENT
  Age: 35 Year
  Sex: Male

DRUGS (7)
  1. LEVETIRACETAM [Interacting]
     Active Substance: LEVETIRACETAM
     Indication: Epilepsy
     Dosage: UNK
  2. LEVETIRACETAM [Interacting]
     Active Substance: LEVETIRACETAM
     Indication: Haemangioma
     Dosage: 500 MILLIGRAM, 2X/DAY (BID)
  3. VALPROATE [Interacting]
     Active Substance: VALPROIC ACID
     Indication: Epilepsy
     Dosage: UNK
  4. VALPROATE [Interacting]
     Active Substance: VALPROIC ACID
     Indication: Haemangioma
  5. PHENYTOIN [Suspect]
     Active Substance: PHENYTOIN
     Indication: Haemangioma
     Dosage: UNK
  6. PHENYTOIN [Suspect]
     Active Substance: PHENYTOIN
     Indication: Epilepsy
  7. ZONISAMIDE [Suspect]
     Active Substance: ZONISAMIDE

REACTIONS (3)
  - Drug interaction [Recovered/Resolved]
  - Drug reaction with eosinophilia and systemic symptoms [Recovered/Resolved]
  - Off label use [Unknown]
